FAERS Safety Report 18387102 (Version 1)
Quarter: 2020Q4

REPORT INFORMATION
  Report Type: Report from Study
  Country: DE (occurrence: DE)
  Receive Date: 20201015
  Receipt Date: 20201015
  Transmission Date: 20210114
  Serious: Yes (Death, Hospitalization, Other)
  Sender: FDA-Public Use
  Company Number: PHHO2016DE017789

PATIENT
  Age: 79 Year
  Sex: Female
  Weight: 72 kg

DRUGS (32)
  1. BLINDED ELTROMBOPAG [Suspect]
     Active Substance: ELTROMBOPAG
     Dosage: 20 MG/M2, 32 ABS, DAY 1-5
     Route: 042
     Dates: start: 20160613
  2. COMPARATOR DECITABINE [Suspect]
     Active Substance: DECITABINE
     Dosage: 32 MG/M2, UNK
     Route: 042
     Dates: start: 20160613, end: 20160617
  3. TORASEMIDE [Concomitant]
     Active Substance: TORSEMIDE
     Indication: PRODUCT USED FOR UNKNOWN INDICATION
     Dosage: 1-0-0-0
     Route: 065
  4. PANTOPRAZOLE [Concomitant]
     Active Substance: PANTOPRAZOLE
     Indication: PRODUCT USED FOR UNKNOWN INDICATION
     Dosage: 1-0-0-0
     Route: 065
  5. OXYCODONE [Concomitant]
     Active Substance: OXYCODONE
     Indication: PRODUCT USED FOR UNKNOWN INDICATION
     Dosage: 1-0-1-0
     Route: 065
  6. BLINDED NO TREATMENT RECEIVED [Suspect]
     Active Substance: INVESTIGATIONAL PRODUCT
     Dosage: 20 MG/M2, 33 ABS, DAY 1-5
     Route: 042
     Dates: start: 20160510
  7. COMPARATOR DECITABINE [Suspect]
     Active Substance: DECITABINE
     Dosage: 33 MG/M2, UNK
     Route: 042
     Dates: start: 20160510, end: 20160514
  8. BISOPROLOL [Concomitant]
     Active Substance: BISOPROLOL
     Indication: PRODUCT USED FOR UNKNOWN INDICATION
     Dosage: 1-0-1-0
     Route: 065
  9. TAZOBAC [Concomitant]
     Active Substance: PIPERACILLIN SODIUM\TAZOBACTAM SODIUM
     Indication: PRODUCT USED FOR UNKNOWN INDICATION
     Route: 065
  10. BLINDED ELTROMBOPAG [Suspect]
     Active Substance: ELTROMBOPAG
     Dosage: 20 MG/M2, 33 ABS, DAY 1-5
     Route: 042
     Dates: start: 20160510
  11. COMPARATOR DECITABINE [Suspect]
     Active Substance: DECITABINE
     Dosage: 32 MG/M2, UNK
     Route: 042
     Dates: start: 20160719, end: 20160723
  12. ACICLOVIR [Concomitant]
     Active Substance: ACYCLOVIR
     Indication: PRODUCT USED FOR UNKNOWN INDICATION
     Dosage: 1-1-1-0
     Route: 065
  13. FLUCONAZOLE. [Concomitant]
     Active Substance: FLUCONAZOLE
     Indication: PRODUCT USED FOR UNKNOWN INDICATION
     Dosage: 1-0-1-0
     Route: 065
  14. NALOXONE [Concomitant]
     Active Substance: NALOXONE
     Indication: PRODUCT USED FOR UNKNOWN INDICATION
     Dosage: 1-0-1-0
     Route: 065
  15. PREDNISOLON [Concomitant]
     Active Substance: PREDNISOLONE
     Indication: PRODUCT USED FOR UNKNOWN INDICATION
     Route: 065
  16. BLINDED ELTROMBOPAG [Suspect]
     Active Substance: ELTROMBOPAG
     Dosage: 20 MG/M2, 32 ABS, DAY 1-5
     Route: 042
     Dates: start: 20160719
  17. DIMETINDENE [Concomitant]
     Active Substance: DIMETHINDENE
     Indication: PRODUCT USED FOR UNKNOWN INDICATION
     Dosage: 0-0-0-1
     Route: 065
  18. BLINDED ELTROMBOPAG [Suspect]
     Active Substance: ELTROMBOPAG
     Indication: ACUTE MYELOID LEUKAEMIA
     Dosage: 20 MG/M2, 35 ABS, DAY 1-5
     Route: 042
     Dates: start: 20160413
  19. BLINDED NO TREATMENT RECEIVED [Suspect]
     Active Substance: INVESTIGATIONAL PRODUCT
     Dosage: 20 MG/M2, 32 ABS, DAY 1-5
     Route: 042
     Dates: start: 20160719
  20. ALLOPURINOL. [Concomitant]
     Active Substance: ALLOPURINOL
     Indication: PRODUCT USED FOR UNKNOWN INDICATION
     Dosage: 1-0-0-0
     Route: 065
  21. MOXIFLOXACIN. [Concomitant]
     Active Substance: MOXIFLOXACIN
     Indication: PRODUCT USED FOR UNKNOWN INDICATION
     Dosage: 1-0-0-0
     Route: 065
     Dates: end: 20160502
  22. PLACEBO [Suspect]
     Active Substance: UNSPECIFIED INGREDIENT
     Indication: ACUTE MYELOID LEUKAEMIA
     Dosage: 20 MG/M2, 35 ABS, DAY 1-5
     Route: 042
     Dates: start: 20160413
  23. BLINDED NO TREATMENT RECEIVED [Suspect]
     Active Substance: INVESTIGATIONAL PRODUCT
     Indication: ACUTE MYELOID LEUKAEMIA
     Dosage: 20 MG/M2, 35 ABS, DAY 1-5
     Route: 042
     Dates: start: 20160413
  24. BLINDED NO TREATMENT RECEIVED [Suspect]
     Active Substance: INVESTIGATIONAL PRODUCT
     Dosage: 20 MG/M2, 32 ABS, DAY 1-5
     Route: 042
     Dates: start: 20160613
  25. PLACEBO [Suspect]
     Active Substance: UNSPECIFIED INGREDIENT
     Dosage: 20 MG/M2, 32 ABS, DAY 1-5
     Route: 042
     Dates: start: 20160613
  26. PLACEBO [Suspect]
     Active Substance: UNSPECIFIED INGREDIENT
     Dosage: 20 MG/M2, 32 ABS, DAY 1-5
     Route: 042
     Dates: start: 20160719
  27. COMPARATOR DECITABINE [Suspect]
     Active Substance: DECITABINE
     Indication: ACUTE MYELOID LEUKAEMIA
     Dosage: 35 MG/M2, UNK
     Route: 042
     Dates: start: 20160412, end: 20160416
  28. URSOFALK [Concomitant]
     Active Substance: URSODIOL
     Indication: HYPERBILIRUBINAEMIA
     Dosage: UNK
     Route: 065
  29. RIVAROXABAN [Concomitant]
     Active Substance: RIVAROXABAN
     Indication: ATRIAL FIBRILLATION
     Dosage: UNK
     Route: 065
  30. CIPROFLOXACIN. [Concomitant]
     Active Substance: CIPROFLOXACIN
     Indication: PRODUCT USED FOR UNKNOWN INDICATION
     Dosage: 1-0-1-0
     Route: 065
     Dates: start: 20160503
  31. ACIDE FOLIQUE [Concomitant]
     Active Substance: FOLIC ACID
     Indication: PRODUCT USED FOR UNKNOWN INDICATION
     Dosage: 1-0-0-0
     Route: 065
  32. PLACEBO [Suspect]
     Active Substance: UNSPECIFIED INGREDIENT
     Dosage: 20 MG/M2, 33 ABS, DAY 1-5
     Route: 042
     Dates: start: 20160510

REACTIONS (12)
  - Sepsis [Fatal]
  - Infection [Recovered/Resolved]
  - Pneumonia [Recovered/Resolved]
  - Acute myeloid leukaemia [Fatal]
  - Febrile neutropenia [Recovered/Resolved]
  - Atrial fibrillation [Recovered/Resolved]
  - Atypical pneumonia [Unknown]
  - Rash [Recovered/Resolved]
  - Bronchopulmonary aspergillosis [Unknown]
  - Tachyarrhythmia [Recovered/Resolved]
  - General physical health deterioration [Recovered/Resolved]
  - Neutropenic sepsis [Fatal]

NARRATIVE: CASE EVENT DATE: 20160413
